FAERS Safety Report 21330219 (Version 3)
Quarter: 2023Q1

REPORT INFORMATION
  Report Type: Report from Study
  Country: US (occurrence: US)
  Receive Date: 20220913
  Receipt Date: 20230224
  Transmission Date: 20230418
  Serious: Yes (Hospitalization, Other)
  Sender: FDA-Public Use
  Company Number: US-ABBVIE-20K-163-3607487-00

PATIENT
  Age: 68 Year
  Sex: Female
  Weight: 38.1 kg

DRUGS (12)
  1. HUMIRA [Suspect]
     Active Substance: ADALIMUMAB
     Indication: Crohn^s disease
     Route: 058
  2. HUMIRA [Suspect]
     Active Substance: ADALIMUMAB
     Dosage: CITRATE FREE
     Route: 058
     Dates: start: 20200523
  3. HUMIRA [Suspect]
     Active Substance: ADALIMUMAB
     Route: 058
  4. HUMIRA [Suspect]
     Active Substance: ADALIMUMAB
     Dosage: CITRATE FREE
     Route: 058
     Dates: end: 20221105
  5. HUMIRA [Suspect]
     Active Substance: ADALIMUMAB
     Dosage: CITRATE FREE
     Route: 058
  6. CARBON MONOXIDE [Suspect]
     Active Substance: CARBON MONOXIDE
     Indication: Product used for unknown indication
     Route: 065
  7. XANAX [Concomitant]
     Active Substance: ALPRAZOLAM
     Indication: Product used for unknown indication
  8. PENTASA [Concomitant]
     Active Substance: MESALAMINE
     Indication: Product used for unknown indication
  9. PREDNISONE [Concomitant]
     Active Substance: PREDNISONE
     Indication: Product used for unknown indication
  10. LEXAPRO [Concomitant]
     Active Substance: ESCITALOPRAM OXALATE
     Indication: Product used for unknown indication
  11. LEUPROLIDE [Concomitant]
     Active Substance: LEUPROLIDE
     Indication: Product used for unknown indication
  12. GABAPENTIN [Concomitant]
     Active Substance: GABAPENTIN
     Indication: Product used for unknown indication

REACTIONS (53)
  - Anxiety [Not Recovered/Not Resolved]
  - Carbon monoxide poisoning [Unknown]
  - Sitting disability [Unknown]
  - Asthenia [Not Recovered/Not Resolved]
  - Blood glucose fluctuation [Not Recovered/Not Resolved]
  - Pulmonary mass [Unknown]
  - Stoma site erythema [Not Recovered/Not Resolved]
  - Paranasal sinus hypersecretion [Not Recovered/Not Resolved]
  - Stoma site pain [Not Recovered/Not Resolved]
  - Nerve injury [Unknown]
  - Dysstasia [Recovered/Resolved]
  - Fatigue [Unknown]
  - Fungal infection [Recovering/Resolving]
  - Urinary incontinence [Unknown]
  - Hypersomnia [Unknown]
  - Weight decreased [Unknown]
  - Swelling [Recovering/Resolving]
  - Neuritis [Not Recovered/Not Resolved]
  - Drug interaction [Unknown]
  - Blood glucose abnormal [Unknown]
  - Walking aid user [Unknown]
  - Peripheral nerve injury [Unknown]
  - Pneumonia fungal [Recovering/Resolving]
  - Nervousness [Unknown]
  - Dyspepsia [Recovered/Resolved]
  - Wound secretion [Unknown]
  - Diabetes mellitus inadequate control [Not Recovered/Not Resolved]
  - Diabetes mellitus inadequate control [Not Recovered/Not Resolved]
  - Stoma site reaction [Unknown]
  - Rash papular [Recovering/Resolving]
  - Pneumonia [Not Recovered/Not Resolved]
  - Pain [Unknown]
  - Oral fungal infection [Not Recovered/Not Resolved]
  - Neuralgia [Not Recovered/Not Resolved]
  - Infection [Not Recovered/Not Resolved]
  - Pain in extremity [Unknown]
  - Peripheral swelling [Recovering/Resolving]
  - Sinusitis [Recovering/Resolving]
  - Mucosal infection [Recovering/Resolving]
  - Back pain [Unknown]
  - Nasal inflammation [Unknown]
  - Pharyngeal inflammation [Unknown]
  - Productive cough [Unknown]
  - Neuropathy peripheral [Unknown]
  - Gastrointestinal infection [Unknown]
  - Abscess intestinal [Unknown]
  - Bladder discomfort [Recovered/Resolved]
  - Confusional state [Unknown]
  - Diabetes mellitus [Unknown]
  - Ataxia [Unknown]
  - Rehabilitation therapy [Unknown]
  - Unevaluable event [Unknown]
  - Hand deformity [Unknown]

NARRATIVE: CASE EVENT DATE: 20200523
